FAERS Safety Report 9011632 (Version 1)
Quarter: 2013Q1

REPORT INFORMATION
  Report Type: Spontaneous
  Country: US (occurrence: US)
  Receive Date: 20130108
  Receipt Date: 20130108
  Transmission Date: 20140127
  Serious: No
  Sender: FDA-Public Use
  Company Number: US-ASTRAZENECA-2012SE91840

PATIENT
  Sex: Female

DRUGS (2)
  1. LISINOPRIL HCTZ [Suspect]
     Route: 048
  2. TRIAMTERENE [Suspect]
     Route: 065

REACTIONS (3)
  - Sensation of foreign body [Unknown]
  - Dry skin [Unknown]
  - Adverse drug reaction [Unknown]
